FAERS Safety Report 12276683 (Version 5)
Quarter: 2016Q3

REPORT INFORMATION
  Report Type: Spontaneous
  Country: US (occurrence: US)
  Receive Date: 20160418
  Receipt Date: 20160812
  Transmission Date: 20161109
  Serious: No
  Sender: FDA-Public Use
  Company Number: US-PFIZER INC-2016197421

PATIENT
  Age: 72 Year
  Sex: Female

DRUGS (10)
  1. MAGNESIUM [Concomitant]
     Active Substance: MAGNESIUM
     Dosage: 250 MG, DAILY
     Dates: start: 201504
  2. CITALOPRAM [Concomitant]
     Active Substance: CITALOPRAM HYDROBROMIDE
     Dosage: 40 MG, DAILY
     Dates: start: 201504
  3. TRAZODONE [Concomitant]
     Active Substance: TRAZODONE HYDROCHLORIDE
     Dosage: 150 MG, 1X/DAY (150 MG 1 TAB BEDTIME)
     Dates: start: 201504
  4. SOTALOL. [Concomitant]
     Active Substance: SOTALOL
     Dosage: 80 MG, 2X/DAY
     Dates: start: 201504
  5. NEURONTIN [Suspect]
     Active Substance: GABAPENTIN
     Indication: PAIN
     Dosage: 600 MG, 4X/DAY
     Dates: start: 201511
  6. SPIRONOLACTONE. [Concomitant]
     Active Substance: SPIRONOLACTONE
     Dosage: 25 MG, DAILY
  7. NEURONTIN [Suspect]
     Active Substance: GABAPENTIN
     Indication: HYPOAESTHESIA
     Dosage: 600 MG, 4X/DAY
     Dates: start: 20160120, end: 201601
  8. NEURONTIN [Suspect]
     Active Substance: GABAPENTIN
     Indication: PARAESTHESIA
  9. OXYCODONE [Concomitant]
     Active Substance: OXYCODONE
     Dosage: AS NEEDED (10/325 MG EVERY 6 HRS AS NEEDED)
  10. RANIT [Concomitant]
     Dosage: 300 MG, DAILY (150 MG, 1-TAB X 2 DAILY )
     Dates: start: 201605

REACTIONS (1)
  - Drug ineffective for unapproved indication [Recovered/Resolved]
